FAERS Safety Report 24416603 (Version 1)
Quarter: 2024Q4

REPORT INFORMATION
  Report Type: Spontaneous
  Country: US (occurrence: None)
  Receive Date: 20241009
  Receipt Date: 20241009
  Transmission Date: 20250115
  Serious: Yes (Hospitalization)
  Sender: Public
  Company Number: None

PATIENT
  Age: 6 Year
  Sex: Male
  Weight: 22.1 kg

DRUGS (4)
  1. MERCAPTOPURINE [Suspect]
     Active Substance: MERCAPTOPURINE
     Dates: end: 20241001
  2. METHOTREXATE [Suspect]
     Active Substance: METHOTREXATE
     Dates: end: 20241001
  3. PREDNISONE [Suspect]
     Active Substance: PREDNISONE
     Dates: end: 20240817
  4. VINCRISTINE SULFATE [Suspect]
     Active Substance: VINCRISTINE SULFATE
     Dates: end: 20241012

REACTIONS (15)
  - Seizure [None]
  - Hemiparesis [None]
  - Facial paralysis [None]
  - Head injury [None]
  - Cerebrovascular accident [None]
  - Neutropenia [None]
  - Hypertension [None]
  - Tachycardia [None]
  - Tachypnoea [None]
  - Haemoglobin decreased [None]
  - Abnormal behaviour [None]
  - Cholelithiasis [None]
  - Jaundice [None]
  - Aplasia pure red cell [None]
  - Haemolysis [None]

NARRATIVE: CASE EVENT DATE: 20241002
